FAERS Safety Report 15065142 (Version 18)
Quarter: 2024Q1

REPORT INFORMATION
  Report Type: Other
  Country: IT (occurrence: IT)
  Receive Date: 20180626
  Receipt Date: 20240215
  Transmission Date: 20240409
  Serious: Yes (Hospitalization, Other)
  Sender: FDA-Public Use
  Company Number: IT-ROCHE-2026263

PATIENT
  Age: 67 Year
  Sex: Female
  Weight: 77 kg

DRUGS (31)
  1. HERCEPTIN [Suspect]
     Active Substance: TRASTUZUMAB
     Indication: HER2 positive breast cancer
     Route: 042
     Dates: start: 20170726, end: 20170726
  2. HERCEPTIN [Suspect]
     Active Substance: TRASTUZUMAB
     Route: 042
     Dates: start: 20170818, end: 20171018
  3. HERCEPTIN [Suspect]
     Active Substance: TRASTUZUMAB
     Route: 042
     Dates: start: 20171206, end: 20171206
  4. HERCEPTIN [Suspect]
     Active Substance: TRASTUZUMAB
     Route: 042
     Dates: start: 20180105, end: 20210503
  5. PERJETA [Suspect]
     Active Substance: PERTUZUMAB
     Indication: HER2 positive breast cancer
     Route: 042
     Dates: start: 20170818, end: 20170818
  6. PERJETA [Suspect]
     Active Substance: PERTUZUMAB
     Route: 042
     Dates: start: 20170906, end: 20171018
  7. PERJETA [Suspect]
     Active Substance: PERTUZUMAB
     Route: 042
     Dates: start: 20171206, end: 20171206
  8. PERJETA [Suspect]
     Active Substance: PERTUZUMAB
     Route: 042
     Dates: start: 20180105, end: 20210503
  9. TAXOTERE [Suspect]
     Active Substance: DOCETAXEL
     Indication: HER2 positive breast cancer
     Route: 042
     Dates: start: 20170726, end: 20170906
  10. TAXOTERE [Suspect]
     Active Substance: DOCETAXEL
     Route: 042
     Dates: start: 20170906, end: 20170927
  11. TAXOTERE [Suspect]
     Active Substance: DOCETAXEL
     Route: 042
     Dates: start: 20171206, end: 20180126
  12. FEMARA [Suspect]
     Active Substance: LETROZOLE
     Indication: HER2 positive breast cancer
     Route: 048
     Dates: start: 20180209
  13. FEMARA [Suspect]
     Active Substance: LETROZOLE
     Dosage: MOST RECENT DOSE 30/JUN/2023
     Route: 048
     Dates: start: 20180210
  14. LEVOTHYROXINE SODIUM [Concomitant]
     Active Substance: LEVOTHYROXINE SODIUM
  15. HYDROCHLOROTHIAZIDE\TELMISARTAN [Concomitant]
     Active Substance: HYDROCHLOROTHIAZIDE\TELMISARTAN
     Dates: start: 20100310
  16. LOPERAMIDE [Concomitant]
     Active Substance: LOPERAMIDE
     Indication: Diarrhoea
     Dosage: ONGOING = CHECKED
     Dates: start: 20180126
  17. LOPERAMIDE [Concomitant]
     Active Substance: LOPERAMIDE
     Dosage: ONGOING = CHECKED
     Dates: start: 20170906, end: 20191018
  18. DELORAZEPAM [Concomitant]
     Active Substance: DELORAZEPAM
     Indication: Major depression
     Dates: start: 20131218, end: 20171113
  19. DELORAZEPAM [Concomitant]
     Active Substance: DELORAZEPAM
     Dates: start: 20171113
  20. UREA [Concomitant]
     Active Substance: UREA
     Indication: Pruritus
     Dosage: ONGOING = NOT CHECKED
     Dates: start: 20180926, end: 20190110
  21. CETIRIZINE HYDROCHLORIDE [Concomitant]
     Active Substance: CETIRIZINE HYDROCHLORIDE
     Indication: Pruritus
     Dosage: ONGOING = CHECKED
     Dates: start: 20181002, end: 20181215
  22. VALPROIC ACID [Concomitant]
     Active Substance: VALPROIC ACID
     Dosage: ONGOING = CHECKED
     Dates: start: 20190128
  23. VALPROATE SODIUM [Concomitant]
     Active Substance: VALPROATE SODIUM
     Dosage: ONGOING = CHECKED
     Dates: start: 20181108, end: 20190127
  24. POTASSIUM ASPARTATE [Concomitant]
     Active Substance: POTASSIUM ASPARTATE
     Indication: Hypokalaemia
     Dates: start: 20200130
  25. KCL [Concomitant]
     Active Substance: POTASSIUM CHLORIDE
     Dosage: ONGOING = CHECKED
     Dates: start: 20180427
  26. KCL [Concomitant]
     Active Substance: POTASSIUM CHLORIDE
     Dosage: ONGOING = CHECKED
     Dates: start: 20210731
  27. SOLIFENACINA [Concomitant]
     Indication: Urinary incontinence
     Dates: start: 20200731
  28. MAGNESIUM [Concomitant]
     Active Substance: MAGNESIUM
     Indication: Hypomagnesaemia
     Dosage: ONGOING = CHECKED
     Dates: start: 20210322
  29. MAGNESIUM [Concomitant]
     Active Substance: MAGNESIUM
     Dosage: ONGOING = CHECKED
     Dates: start: 20180427
  30. CHLORPHENIRAMINE [Concomitant]
     Active Substance: CHLORPHENIRAMINE
     Dosage: ONGOING = CHECKED
     Dates: start: 20170726
  31. MAGNESIUM SULFATE [Concomitant]
     Active Substance: MAGNESIUM SULFATE\MAGNESIUM SULFATE HEPTAHYDRATE
     Indication: Hypomagnesaemia
     Dates: start: 20200403, end: 20210503

REACTIONS (2)
  - Major depression [Not Recovered/Not Resolved]
  - Major depression [Recovered/Resolved]

NARRATIVE: CASE EVENT DATE: 20171113
